FAERS Safety Report 10016937 (Version 1)
Quarter: 2014Q1

REPORT INFORMATION
  Report Type: Spontaneous
  Country: US (occurrence: US)
  Receive Date: 20140318
  Receipt Date: 20140318
  Transmission Date: 20141002
  Serious: No
  Sender: FDA-Public Use
  Company Number: US-BIOGENIDEC-2014BI023960

PATIENT
  Sex: Female

DRUGS (1)
  1. TYSABRI [Suspect]
     Indication: MULTIPLE SCLEROSIS
     Route: 042
     Dates: start: 20130402

REACTIONS (10)
  - Borrelia test positive [Recovered/Resolved]
  - Seasonal allergy [Unknown]
  - Borrelia test negative [Unknown]
  - Stress [Not Recovered/Not Resolved]
  - Infectious mononucleosis [Recovered/Resolved]
  - Coxsackie viral infection [Recovered/Resolved]
  - Rash generalised [Not Recovered/Not Resolved]
  - Asthenia [Recovered/Resolved]
  - Herpes zoster [Recovered/Resolved]
  - Pharyngitis streptococcal [Recovered/Resolved]
